FAERS Safety Report 6788731-X (Version None)
Quarter: 2010Q2

REPORT INFORMATION
  Report Type: 
  Country: None (occurrence: None)
  Receive Date: 20100623
  Receipt Date: 20080429
  Transmission Date: 20101027
  Serious: No
  Sender: FDA-Public Use
  Company Number: US-PFIZER INC-2008037405

PATIENT
  Age: 50 Year
  Sex: Male

DRUGS (10)
  1. GEODON [Suspect]
     Dates: start: 20050101, end: 20080101
  2. PRILOSEC [Concomitant]
     Route: 048
     Dates: start: 20070201
  3. LYRICA [Concomitant]
     Route: 048
     Dates: start: 20050101
  4. LEVOXYL [Concomitant]
     Route: 048
     Dates: start: 19990101
  5. DIAZEPAM [Concomitant]
     Route: 048
     Dates: start: 20040101
  6. ATENOLOL [Concomitant]
     Route: 048
     Dates: start: 20010101
  7. SIMVASTATIN [Concomitant]
     Route: 048
     Dates: start: 20060801
  8. NORVASC [Concomitant]
     Route: 048
     Dates: start: 20051101
  9. TEMAZEPAM [Concomitant]
     Route: 048
     Dates: start: 20070201
  10. CITALOPRAM [Concomitant]
     Route: 048
     Dates: start: 20070201

REACTIONS (3)
  - GAIT DISTURBANCE [None]
  - GASTROINTESTINAL MOTILITY DISORDER [None]
  - NAUSEA [None]
